FAERS Safety Report 4538646-2 (Version None)
Quarter: 2004Q4

REPORT INFORMATION
  Report Type: 
  Country: None (occurrence: None)
  Receive Date: 20041227
  Receipt Date: 20041216
  Transmission Date: 20050328
  Serious: Yes (Hospitalization)
  Sender: FDA-Public Use
  Company Number: DE-JNJFOC-20041204217

PATIENT
  Age: 25 Year
  Sex: Female

DRUGS (1)
  1. NORETHINDRONE ACETATE AND ETHINYL ESTRADIOL [Suspect]
     Indication: CONTRACEPTION
     Route: 049

REACTIONS (6)
  - ACUTE RESPIRATORY FAILURE [None]
  - INFLUENZA [None]
  - PHLEBOTHROMBOSIS [None]
  - PNEUMONIA [None]
  - PULMONARY EMBOLISM [None]
  - THROMBOSIS [None]
